FAERS Safety Report 24971660 (Version 1)
Quarter: 2025Q1

REPORT INFORMATION
  Report Type: Spontaneous
  Country: NL (occurrence: NL)
  Receive Date: 20250214
  Receipt Date: 20250214
  Transmission Date: 20250409
  Serious: Yes (Death, Other)
  Sender: PURDUE
  Company Number: NL-OPELLA-2025OHG002210

PATIENT
  Sex: Male

DRUGS (7)
  1. OXYCODONE HYDROCHLORIDE [Suspect]
     Active Substance: OXYCODONE HYDROCHLORIDE
     Indication: Pain
     Route: 065
     Dates: start: 20240401
  2. BUPRENORPHINE [Suspect]
     Active Substance: BUPRENORPHINE
     Indication: Pain
     Dosage: 1 DOSAGE FORM, Q5 DAY
     Route: 065
     Dates: start: 20190201
  3. METHADONE [Suspect]
     Active Substance: METHADONE HYDROCHLORIDE
     Indication: Pain
     Dosage: 1 DOSAGE FORM, DAILY, 1 DF, QD
     Route: 048
     Dates: start: 20220201
  4. MORPHINE [Suspect]
     Active Substance: MORPHINE
     Indication: Pain
     Route: 048
     Dates: start: 20240601
  5. MONTELUKAST [Suspect]
     Active Substance: MONTELUKAST
     Indication: Urticaria
     Dosage: 1 DOSAGE FORM, DAILY
     Route: 048
     Dates: start: 20190201
  6. OMALIZUMAB [Suspect]
     Active Substance: OMALIZUMAB
     Indication: Urticaria
     Route: 065
     Dates: start: 20240401
  7. LEVOCETIRIZINE HYDROCHLORIDE [Suspect]
     Active Substance: LEVOCETIRIZINE HYDROCHLORIDE
     Indication: Urticaria
     Dosage: 5 MILLIGRAM, QID
     Route: 048
     Dates: start: 20180201

REACTIONS (3)
  - Foetal death [Fatal]
  - Maternal exposure during pregnancy [Fatal]
  - Foetal vascular malperfusion [Fatal]

NARRATIVE: CASE EVENT DATE: 20241119
